FAERS Safety Report 23800962 (Version 3)
Quarter: 2024Q3

REPORT INFORMATION
  Report Type: Report from Study
  Country: US (occurrence: US)
  Receive Date: 20240430
  Receipt Date: 20240823
  Transmission Date: 20241017
  Serious: Yes (Other)
  Sender: ALEXION PHARMACEUTICALS
  Company Number: US-AstraZeneca-CH-00611987A

PATIENT
  Sex: Female

DRUGS (1)
  1. STRENSIQ [Suspect]
     Active Substance: ASFOTASE ALFA
     Indication: Product used for unknown indication
     Dosage: UNK
     Route: 065

REACTIONS (6)
  - Calcinosis [Unknown]
  - Salivary gland calculus [Recovered/Resolved]
  - Sialoadenitis [Recovered/Resolved]
  - Exostosis [Unknown]
  - Soft tissue injury [Unknown]
  - Pain [Unknown]
